FAERS Safety Report 24146988 (Version 1)
Quarter: 2024Q3

REPORT INFORMATION
  Report Type: Spontaneous
  Country: US (occurrence: None)
  Receive Date: 20240726
  Receipt Date: 20240726
  Transmission Date: 20241016
  Serious: Yes (Life-Threatening, Hospitalization, Other)
  Sender: Public
  Company Number: None

PATIENT
  Sex: Female
  Weight: 96.3 kg

DRUGS (13)
  1. LEFLUNOMIDE [Suspect]
     Active Substance: LEFLUNOMIDE
     Indication: Rheumatoid arthritis
     Dosage: 1 TABLET DAILY ORAL
     Route: 048
     Dates: start: 20240701, end: 20240726
  2. Bisoprolol/HTCZ [Concomitant]
  3. ISOSORBIDE MONONITRATE [Concomitant]
     Active Substance: ISOSORBIDE MONONITRATE
  4. MONTELUKAST [Concomitant]
  5. CYCLOBENZAPRINE [Concomitant]
     Active Substance: CYCLOBENZAPRINE
  6. CITALOPRAM [Concomitant]
  7. PREGABALIN [Concomitant]
  8. Repathic [Concomitant]
  9. Mounjorno [Concomitant]
  10. ALBUTEROL SULFATE\FLUTICASONE PROPIONATE [Concomitant]
     Active Substance: ALBUTEROL SULFATE\FLUTICASONE PROPIONATE
  11. PREVACID [Concomitant]
     Active Substance: LANSOPRAZOLE
  12. IBUPROFEN [Concomitant]
  13. ZYRTEC [Concomitant]
     Active Substance: CETIRIZINE HYDROCHLORIDE

REACTIONS (2)
  - Swollen tongue [None]
  - Angioedema [None]
